FAERS Safety Report 21130326 (Version 2)
Quarter: 2022Q3

REPORT INFORMATION
  Report Type: Other
  Country: DE (occurrence: None)
  Receive Date: 20220726
  Receipt Date: 20220812
  Transmission Date: 20221027
  Serious: Yes (Death, Hospitalization)
  Sender: FDA-Public Use
  Company Number: DE-ROCHE-3146796

PATIENT
  Age: 40 Year
  Sex: Female

DRUGS (10)
  1. MYCOPHENOLATE MOFETIL [Suspect]
     Active Substance: MYCOPHENOLATE MOFETIL
     Indication: Prophylaxis against graft versus host disease
     Route: 065
  2. CYCLOSPORINE [Suspect]
     Active Substance: CYCLOSPORINE
     Indication: Prophylaxis against graft versus host disease
     Route: 065
  3. PREDNISOLONE [Suspect]
     Active Substance: PREDNISOLONE
     Indication: Prophylaxis against graft versus host disease
     Route: 065
  4. SORAFENIB [Concomitant]
     Active Substance: SORAFENIB
  5. AZACITIDINE [Concomitant]
     Active Substance: AZACITIDINE
  6. VENETOCLAX [Concomitant]
     Active Substance: VENETOCLAX
  7. GILTERITINIB [Concomitant]
     Active Substance: GILTERITINIB
  8. FLUDARABINE [Concomitant]
     Active Substance: FLUDARABINE PHOSPHATE
  9. CARMUSTINE [Concomitant]
     Active Substance: CARMUSTINE
  10. MELPHALAN [Concomitant]
     Active Substance: MELPHALAN

REACTIONS (8)
  - Adenoviral hepatitis [Fatal]
  - Acute kidney injury [Fatal]
  - Multiple organ dysfunction syndrome [Fatal]
  - Atypical pneumonia [Unknown]
  - Septic shock [Unknown]
  - Respiratory failure [Unknown]
  - Pneumonia adenoviral [Unknown]
  - Leukopenia [Unknown]
